FAERS Safety Report 23920092 (Version 1)
Quarter: 2024Q2

REPORT INFORMATION
  Report Type: Spontaneous
  Country: US (occurrence: None)
  Receive Date: 20240530
  Receipt Date: 20240530
  Transmission Date: 20240716
  Serious: Yes (Death)
  Sender: FDA-Public Use
  Company Number: None

PATIENT
  Sex: Female
  Weight: 64.6 kg

DRUGS (1)
  1. FLUOROURACIL [Suspect]
     Active Substance: FLUOROURACIL

REACTIONS (4)
  - Diarrhoea [None]
  - Oropharyngeal pain [None]
  - Swollen tongue [None]
  - Eating disorder [None]

NARRATIVE: CASE EVENT DATE: 20240126
